FAERS Safety Report 9632447 (Version 7)
Quarter: 2017Q1

REPORT INFORMATION
  Report Type: Spontaneous
  Country: US (occurrence: US)
  Receive Date: 20131018
  Receipt Date: 20170208
  Transmission Date: 20170429
  Serious: Yes (Hospitalization, Disabling, Other)
  Sender: FDA-Public Use
  Company Number: US-009507513-1310USA006027

PATIENT
  Sex: Female

DRUGS (13)
  1. ALENDRONATE SODIUM. [Suspect]
     Active Substance: ALENDRONATE SODIUM
     Indication: OSTEOPOROSIS
     Dosage: 70 MG, QW
     Route: 048
     Dates: start: 200802, end: 200810
  2. ALENDRONATE SODIUM. [Suspect]
     Active Substance: ALENDRONATE SODIUM
     Indication: OSTEOPOROSIS
     Dosage: 70 MG, QW
     Route: 065
     Dates: start: 200811, end: 200908
  3. FOSAMAX [Suspect]
     Active Substance: ALENDRONATE SODIUM
     Indication: OSTEOPOROSIS
     Dosage: 70 MG, QW
     Route: 048
     Dates: start: 200101, end: 200802
  4. ALENDRONATE SODIUM. [Suspect]
     Active Substance: ALENDRONATE SODIUM
     Dosage: 70 MG, UNK
     Route: 065
     Dates: start: 20100117, end: 20110926
  5. ALENDRONATE SODIUM. [Suspect]
     Active Substance: ALENDRONATE SODIUM
     Dosage: 70 MG, UNK
     Route: 065
     Dates: start: 20091029, end: 2009
  6. ALENDRONATE SODIUM. [Suspect]
     Active Substance: ALENDRONATE SODIUM
     Dosage: 70 MG, UNK
     Route: 065
     Dates: start: 20120309, end: 20140226
  7. CORTICOSTEROIDS (UNSPECIFIED) [Concomitant]
     Active Substance: UNSPECIFIED INGREDIENT
     Indication: PRODUCT USED FOR UNKNOWN INDICATION
     Dosage: UNK
     Route: 065
     Dates: start: 1995, end: 2005
  8. ALENDRONATE SODIUM. [Suspect]
     Active Substance: ALENDRONATE SODIUM
     Dosage: 70 MG, UNK
     Route: 065
     Dates: start: 20091204, end: 201001
  9. VITAMIN D [Concomitant]
     Active Substance: CHOLECALCIFEROL
     Indication: PRODUCT USED FOR UNKNOWN INDICATION
     Dosage: 200 IU, UNK
     Route: 065
     Dates: start: 1993
  10. IRON (UNSPECIFIED) [Concomitant]
     Active Substance: IRON
     Indication: PRODUCT USED FOR UNKNOWN INDICATION
     Dosage: 10 MG, UNK
     Route: 065
     Dates: start: 1993
  11. CALCIUM (UNSPECIFIED) [Concomitant]
     Active Substance: CALCIUM
     Indication: PRODUCT USED FOR UNKNOWN INDICATION
     Dosage: 1000 MG, UNK
     Route: 065
     Dates: start: 1993
  12. ALENDRONATE SODIUM. [Suspect]
     Active Substance: ALENDRONATE SODIUM
     Dosage: 70 MG, UNK
     Dates: start: 20090903
  13. HORMONES (UNSPECIFIED) [Concomitant]
     Active Substance: UNSPECIFIED INGREDIENT
     Indication: PRODUCT USED FOR UNKNOWN INDICATION
     Dosage: UNK
     Route: 065
     Dates: start: 1984, end: 2005

REACTIONS (29)
  - Sepsis [Unknown]
  - Diaphragmatic disorder [Unknown]
  - Raynaud^s phenomenon [Unknown]
  - Arthralgia [Unknown]
  - Arthralgia [Unknown]
  - Osteomyelitis [Unknown]
  - Hip fracture [Unknown]
  - Wound haemorrhage [Unknown]
  - Fibromyalgia [Unknown]
  - Shock [Unknown]
  - Myalgia [Unknown]
  - Osteoarthritis [Unknown]
  - Hypertension [Unknown]
  - Muscle spasms [Unknown]
  - Osteoporosis [Unknown]
  - Sjogren^s syndrome [Unknown]
  - Polymyositis [Unknown]
  - Atelectasis [Unknown]
  - Hepatitis C [Unknown]
  - Hip arthroplasty [Unknown]
  - Abasia [Unknown]
  - Fall [Unknown]
  - Pathological fracture [Unknown]
  - Interstitial lung disease [Unknown]
  - Back pain [Not Recovered/Not Resolved]
  - Wound infection [Unknown]
  - Anaemia [Unknown]
  - Joint dislocation reduction [Unknown]
  - Scoliosis [Unknown]

NARRATIVE: CASE EVENT DATE: 20041121
